FAERS Safety Report 8492478-1 (Version None)
Quarter: 2012Q2

REPORT INFORMATION
  Report Type: 
  Country: None (occurrence: None)
  Receive Date: 20120629
  Receipt Date: 20120629
  Transmission Date: 20120825
  Serious: Yes (Hospitalization)
  Sender: FDA-Public Use
  Company Number: None

PATIENT
  Age: 87 Year
  Sex: Male
  Weight: 100 kg

DRUGS (1)
  1. HALOPERIDOL [Suspect]
     Dates: start: 20120306

REACTIONS (1)
  - MENTAL STATUS CHANGES [None]
